FAERS Safety Report 9638772 (Version 2)
Quarter: 2013Q4

REPORT INFORMATION
  Report Type: Spontaneous
  Country: US (occurrence: US)
  Receive Date: 20131022
  Receipt Date: 20131022
  Transmission Date: 20140711
  Serious: No
  Sender: FDA-Public Use
  Company Number: US-BRISTOL-MYERS SQUIBB COMPANY-19193960

PATIENT
  Age: 60 Year
  Sex: Male
  Weight: 113.38 kg

DRUGS (9)
  1. ELIQUIS [Suspect]
     Indication: CEREBROVASCULAR ACCIDENT
     Dates: start: 201308
  2. LISINOPRIL [Concomitant]
  3. CARVEDILOL [Concomitant]
  4. COREG [Concomitant]
  5. VITAMIN B6 [Concomitant]
  6. VITAMIN B12 [Concomitant]
  7. POTASSIUM [Concomitant]
  8. LASIX [Concomitant]
  9. PERCOCET [Concomitant]

REACTIONS (1)
  - Muscle strain [Unknown]
